FAERS Safety Report 9626179 (Version 1)
Quarter: 2013Q4

REPORT INFORMATION
  Report Type: Spontaneous
  Country: US (occurrence: US)
  Receive Date: 20131016
  Receipt Date: 20131016
  Transmission Date: 20140711
  Serious: No
  Sender: FDA-Public Use
  Company Number: US-TEVA-438358USA

PATIENT
  Age: 18 Year
  Sex: Male
  Weight: 113.5 kg

DRUGS (1)
  1. PROAIR HFA [Suspect]
     Indication: ASTHMA

REACTIONS (2)
  - Dyspnoea [Not Recovered/Not Resolved]
  - Device malfunction [Unknown]
